FAERS Safety Report 21157296 (Version 2)
Quarter: 2022Q3

REPORT INFORMATION
  Report Type: Spontaneous
  Country: DE (occurrence: None)
  Receive Date: 20220801
  Receipt Date: 20220803
  Transmission Date: 20221027
  Serious: Yes (Other)
  Sender: FDA-Public Use
  Company Number: 2022A268502

PATIENT
  Sex: Male

DRUGS (4)
  1. OLAPARIB [Suspect]
     Active Substance: OLAPARIB
     Dosage: START OF THERAPY WITH OLAPARIB 150 MG 1-0-1 (BRCAI MUTATION)
     Route: 048
     Dates: start: 202109
  2. OLAPARIB [Suspect]
     Active Substance: OLAPARIB
     Dosage: RE-STAGING WITH OLAPARIB THERAPY
     Route: 048
     Dates: start: 202110
  3. OLAPARIB [Suspect]
     Active Substance: OLAPARIB
     Dosage: RE-STAGING UNDER OLAPARIB THERAPY
     Route: 048
     Dates: start: 202201
  4. OLAPARIB [Suspect]
     Active Substance: OLAPARIB
     Dosage: 150 MG IN THE MORNING AND 100 MG IN THE EVENING
     Route: 048

REACTIONS (3)
  - Malignant neoplasm progression [Unknown]
  - Pancytopenia [Unknown]
  - Off label use [Unknown]
